FAERS Safety Report 10431585 (Version 1)
Quarter: 2014Q3

REPORT INFORMATION
  Report Type: Spontaneous
  Country: CH (occurrence: CH)
  Receive Date: 20140904
  Receipt Date: 20140904
  Transmission Date: 20150326
  Serious: Yes (Hospitalization)
  Sender: FDA-Public Use
  Company Number: ALCN2014CH004919

PATIENT
  Age: 4 Year
  Sex: Male

DRUGS (1)
  1. CYCLOGYL [Suspect]
     Active Substance: CYCLOPENTOLATE HYDROCHLORIDE
     Indication: DIAGNOSTIC PROCEDURE
     Dosage: 3 GTT, ONCE/SINGLE
     Route: 047
     Dates: start: 20140729, end: 20140729

REACTIONS (2)
  - Sudden onset of sleep [Recovered/Resolved]
  - Sedation [Recovered/Resolved]

NARRATIVE: CASE EVENT DATE: 20140729
